FAERS Safety Report 17036302 (Version 1)
Quarter: 2019Q4

REPORT INFORMATION
  Report Type: Spontaneous
  Country: IL (occurrence: IL)
  Receive Date: 20191115
  Receipt Date: 20191115
  Transmission Date: 20200122
  Serious: Yes (Other)
  Sender: FDA-Public Use
  Company Number: NVSC2019IL034136

PATIENT
  Age: 84 Year
  Sex: Male

DRUGS (1)
  1. CARBOPLATIN. [Suspect]
     Active Substance: CARBOPLATIN
     Indication: THYROID CANCER METASTATIC
     Dosage: UNK
     Route: 065

REACTIONS (4)
  - Thyroid cancer metastatic [Unknown]
  - Spinal cord compression [Unknown]
  - Quadriplegia [Unknown]
  - Disease progression [Unknown]
